FAERS Safety Report 6997497-X (Version None)
Quarter: 2010Q3

REPORT INFORMATION
  Report Type: 
  Country: None (occurrence: None)
  Receive Date: 20100918
  Receipt Date: 20091019
  Transmission Date: 20110219
  Serious: No
  Sender: FDA-Public Use
  Company Number: US-WYE-H11735809

PATIENT
  Sex: Female
  Weight: 55.84 kg

DRUGS (2)
  1. PRISTIQ [Suspect]
     Indication: PANIC DISORDER
     Route: 048
     Dates: start: 20090401
  2. SIMVASTATIN [Concomitant]

REACTIONS (4)
  - BLOOD CHOLESTEROL INCREASED [None]
  - COGNITIVE DISORDER [None]
  - MEMORY IMPAIRMENT [None]
  - PLATELET COUNT INCREASED [None]
